FAERS Safety Report 5689759-3 (Version None)
Quarter: 2008Q1

REPORT INFORMATION
  Report Type: 
  Country: None (occurrence: None)
  Receive Date: 20080328
  Receipt Date: 20080312
  Transmission Date: 20080703
  Serious: Yes (Life-Threatening, Hospitalization)
  Sender: FDA-Public Use
  Company Number: 2007EU002114

PATIENT
  Age: 15 Year
  Sex: Female

DRUGS (4)
  1. TACROLIMUS [Suspect]
     Indication: LIVER TRANSPLANT
     Dosage: 0.2 UG/KG
     Dates: start: 20030101, end: 20040101
  2. LAMIVUDINE [Suspect]
     Indication: HEPATITIS B
     Dosage: 4 MG/KG
     Dates: start: 20050101
  3. MYCOPHENOLATE MOFETIL [Concomitant]
  4. PREDNISOLONE [Concomitant]

REACTIONS (15)
  - ABASIA [None]
  - ALANINE AMINOTRANSFERASE INCREASED [None]
  - ASPARTATE AMINOTRANSFERASE INCREASED [None]
  - BILIRUBIN CONJUGATED INCREASED [None]
  - BLOOD BILIRUBIN INCREASED [None]
  - DEHYDRATION [None]
  - FANCONI SYNDROME [None]
  - GAMMA-GLUTAMYLTRANSFERASE INCREASED [None]
  - HYPERGLYCAEMIA [None]
  - HYPOURICAEMIA [None]
  - LETHARGY [None]
  - MYOPATHY [None]
  - RENAL TUBULAR ACIDOSIS [None]
  - THROMBOCYTOPENIA [None]
  - VOMITING [None]
